FAERS Safety Report 16151272 (Version 1)
Quarter: 2019Q2

REPORT INFORMATION
  Report Type: Spontaneous
  Country: FI (occurrence: FI)
  Receive Date: 20190402
  Receipt Date: 20190402
  Transmission Date: 20190711
  Serious: Yes (Hospitalization)
  Sender: FDA-Public Use
  Company Number: FI-TEVA-2019-FI-1031442

PATIENT
  Age: 69 Year
  Sex: Female

DRUGS (10)
  1. LOSARTAN AND HYDROCHLOROTHIAZIDE [Concomitant]
     Active Substance: HYDROCHLOROTHIAZIDE\LOSARTAN POTASSIUM
     Dosage: 1,DF,DAILY
     Route: 048
  2. VAGIFEM [Concomitant]
     Active Substance: ESTRADIOL
     Route: 067
  3. AMOXIN COMP [Suspect]
     Active Substance: AMOXICILLIN\CLAVULANIC ACID
     Indication: BRONCHITIS
     Dosage: 2,DF,DAILY
     Route: 048
     Dates: start: 20190206, end: 20190212
  4. INSULIN LISPRO [Concomitant]
     Active Substance: INSULIN LISPRO
     Route: 058
  5. PANTOPRAZOL KRKA [Concomitant]
     Active Substance: PANTOPRAZOLE
     Dosage: 40,MG,DAILY
     Route: 048
  6. LOSARTAN KRKA [Concomitant]
     Active Substance: LOSARTAN
     Dosage: 12.5,MG,DAILY
     Route: 048
  7. ROSUVASTATIN MYLAN [Concomitant]
     Active Substance: ROSUVASTATIN CALCIUM
     Dosage: 20,MG,DAILY
     Route: 048
  8. LEVEMIR [Concomitant]
     Active Substance: INSULIN DETEMIR
     Route: 058
  9. OFTAGEL [Concomitant]
     Active Substance: CARBOMER
  10. PRIMASPAN [Concomitant]
     Active Substance: ASPIRIN
     Dosage: 100,MG,DAILY
     Route: 048

REACTIONS (9)
  - Gamma-glutamyltransferase increased [Not Recovered/Not Resolved]
  - Blood alkaline phosphatase increased [Not Recovered/Not Resolved]
  - Aspartate aminotransferase increased [Not Recovered/Not Resolved]
  - Jaundice [Not Recovered/Not Resolved]
  - Blood bilirubin increased [Not Recovered/Not Resolved]
  - Abdominal pain upper [Not Recovered/Not Resolved]
  - Pruritus [Not Recovered/Not Resolved]
  - Bilirubin conjugated increased [Not Recovered/Not Resolved]
  - Alanine aminotransferase increased [Not Recovered/Not Resolved]

NARRATIVE: CASE EVENT DATE: 20190226
